FAERS Safety Report 4327883-8 (Version None)
Quarter: 2004Q1

REPORT INFORMATION
  Report Type: 
  Country: None (occurrence: None)
  Receive Date: 20040331
  Receipt Date: 20021120
  Transmission Date: 20041129
  Serious: Yes (Hospitalization)
  Sender: FDA-Public Use
  Company Number: US-BRISTOL-MYERS SQUIBB COMPANY-12118493

PATIENT
  Age: 39 Year
  Sex: Male

DRUGS (12)
  1. ATAZANAVIR [Suspect]
     Indication: HIV INFECTION
     Route: 048
     Dates: start: 20020907, end: 20030115
  2. ZERIT [Suspect]
     Route: 048
  3. EPIVIR [Suspect]
     Indication: HIV INFECTION
     Route: 048
     Dates: start: 20020723, end: 20030127
  4. NORVIR [Suspect]
     Indication: HIV INFECTION
     Route: 048
     Dates: start: 20020709, end: 20030127
  5. VIREAD [Suspect]
     Indication: HIV INFECTION
     Dosage: DOSE REDUCED TO 200 MG/DAY ON 07 SEPT 02 AND CONTINUES.
     Route: 048
     Dates: start: 20020723, end: 20030127
  6. SUSTIVA [Concomitant]
     Indication: HIV INFECTION
     Dates: start: 20001103, end: 20020625
  7. VIDEX [Concomitant]
     Indication: HIV INFECTION
     Dates: start: 20001103, end: 20020611
  8. KALETRA [Concomitant]
     Indication: HIV INFECTION
     Dates: start: 20021103, end: 20020709
  9. LAROXYL [Concomitant]
     Indication: DEPRESSION
     Dates: start: 19941223
  10. NEURONTIN [Concomitant]
     Indication: NEUROPATHY
     Dates: start: 20021113
  11. RIVOTRIL [Concomitant]
     Indication: NEUROPATHY
     Dates: start: 19960712
  12. SUBUTEX [Concomitant]
     Indication: DRUG DEPENDENCE
     Dates: start: 19980809

REACTIONS (14)
  - BRONCHITIS [None]
  - CORNEAL ULCER [None]
  - DEPRESSION [None]
  - EYELID PTOSIS [None]
  - GAMMA-GLUTAMYLTRANSFERASE INCREASED [None]
  - HAEMOGLOBIN DECREASED [None]
  - HEADACHE [None]
  - HYPERBILIRUBINAEMIA [None]
  - KERATITIS [None]
  - ORAL CANDIDIASIS [None]
  - PARAESTHESIA [None]
  - RENAL FAILURE [None]
  - RENAL TUBULAR DISORDER [None]
  - SCAB [None]
